FAERS Safety Report 11935663 (Version 1)
Quarter: 2016Q1

REPORT INFORMATION
  Report Type: Spontaneous
  Country: US (occurrence: US)
  Receive Date: 20160121
  Receipt Date: 20160121
  Transmission Date: 20160526
  Serious: No
  Sender: FDA-Public Use
  Company Number: US-SHIRE-US201600529

PATIENT
  Age: 32 Year
  Sex: Female

DRUGS (1)
  1. LIALDA [Suspect]
     Active Substance: MESALAMINE
     Indication: CROHN^S DISEASE
     Dosage: 3.6 MG (THREE 1.2 G TABLETS), 1X/DAY:QD
     Route: 048
     Dates: start: 201511

REACTIONS (2)
  - Product use issue [Not Recovered/Not Resolved]
  - Chromaturia [Not Recovered/Not Resolved]

NARRATIVE: CASE EVENT DATE: 201511
